FAERS Safety Report 16138071 (Version 2)
Quarter: 2019Q2

REPORT INFORMATION
  Report Type: Spontaneous
  Country: US (occurrence: US)
  Receive Date: 20190330
  Receipt Date: 20190413
  Transmission Date: 20190711
  Serious: No
  Sender: FDA-Public Use
  Company Number: US-TEVA-2019-US-1022020

PATIENT

DRUGS (1)
  1. TESTOSTERONE,30 MG / 1.5 ML [Suspect]
     Active Substance: TESTOSTERONE
     Route: 065

REACTIONS (1)
  - Hormone level abnormal [Unknown]
